FAERS Safety Report 9003370 (Version 1)
Quarter: 2013Q1

REPORT INFORMATION
  Report Type: Spontaneous
  Country: US (occurrence: US)
  Receive Date: 20130108
  Receipt Date: 20130108
  Transmission Date: 20140127
  Serious: No
  Sender: FDA-Public Use
  Company Number: US-ASTRAZENECA-2012SE91516

PATIENT
  Sex: Male

DRUGS (9)
  1. CRESTOR [Suspect]
     Dosage: IN MORNING
     Route: 048
  2. OMEPRAZOLE [Suspect]
     Route: 048
  3. OMEPRAZOLE [Suspect]
     Route: 048
  4. LUPRON [Concomitant]
  5. TRICOR [Concomitant]
  6. AMLODIPINE [Concomitant]
     Indication: BLOOD PRESSURE ABNORMAL
  7. LEVOCOR [Concomitant]
  8. ZOCOR [Concomitant]
  9. LIPITOR [Concomitant]

REACTIONS (6)
  - Dyskinesia [Unknown]
  - Tremor [Unknown]
  - Hypertension [Unknown]
  - Activities of daily living impaired [Unknown]
  - Muscular weakness [Unknown]
  - Intentional drug misuse [Unknown]
